FAERS Safety Report 17703195 (Version 3)
Quarter: 2020Q2

REPORT INFORMATION
  Report Type: Spontaneous
  Country: US (occurrence: US)
  Receive Date: 20200424
  Receipt Date: 20200514
  Transmission Date: 20200714
  Serious: Yes (Hospitalization)
  Sender: FDA-Public Use
  Company Number: US-KARYOPHARM-2020KPT000454

PATIENT

DRUGS (5)
  1. GABAPENTIN. [Concomitant]
     Active Substance: GABAPENTIN
     Indication: PRODUCT USED FOR UNKNOWN INDICATION
  2. VARUBI [Concomitant]
     Active Substance: ROLAPITANT
     Indication: PLASMA CELL MYELOMA
     Dosage: 180 MG, 1X/2 WEEKS
     Dates: start: 20200413
  3. MORPHINE [Concomitant]
     Active Substance: MORPHINE
     Indication: PRODUCT USED FOR UNKNOWN INDICATION
  4. ZOFRAN [Concomitant]
     Active Substance: ONDANSETRON HYDROCHLORIDE
     Indication: NAUSEA
     Dosage: UNK, TID AS NEEDED
  5. XPOVIO [Suspect]
     Active Substance: SELINEXOR
     Indication: PLASMA CELL MYELOMA
     Dosage: 80 MG, 2X/WEEK
     Route: 048
     Dates: start: 20200413, end: 20200415

REACTIONS (8)
  - Cardiac failure [Unknown]
  - Nausea [Unknown]
  - Decreased appetite [Unknown]
  - Dyspnoea [Unknown]
  - Fluid retention [Recovered/Resolved]
  - Confusional state [Unknown]
  - Acute kidney injury [Recovered/Resolved]
  - Hyponatraemia [Unknown]

NARRATIVE: CASE EVENT DATE: 2020
